FAERS Safety Report 5368898-0 (Version None)
Quarter: 2007Q2

REPORT INFORMATION
  Report Type: 
  Country: None (occurrence: None)
  Receive Date: 20070625
  Receipt Date: 20061212
  Transmission Date: 20071010
  Serious: Yes (Other)
  Sender: FDA-Public Use
  Company Number: US-ASTRAZENECA-2006UW20048

PATIENT
  Age: 70 Year
  Sex: Female
  Weight: 66.8 kg

DRUGS (6)
  1. CRESTOR [Suspect]
     Indication: BLOOD CHOLESTEROL INCREASED
     Route: 048
     Dates: start: 20060824, end: 20061001
  2. REQUIP [Suspect]
     Indication: RESTLESS LEGS SYNDROME
     Route: 048
     Dates: start: 20060201
  3. ESOMEPRAZOLE MAGNESIUM [Concomitant]
     Route: 048
     Dates: start: 20040809
  4. OESTRADIOL [Concomitant]
     Dates: start: 20010110
  5. DIOVAN HCT [Concomitant]
     Dates: start: 20030821
  6. EZETIMIBE + SIMVASTATIN [Concomitant]
     Dates: start: 20060731, end: 20060824

REACTIONS (1)
  - LIVER FUNCTION TEST ABNORMAL [None]
